FAERS Safety Report 13348106 (Version 1)
Quarter: 2017Q1

REPORT INFORMATION
  Report Type: Spontaneous
  Country: US (occurrence: US)
  Receive Date: 20170318
  Receipt Date: 20170318
  Transmission Date: 20170428
  Serious: No
  Sender: FDA-Public Use
  Company Number: US-BRISTOL-MYERS SQUIBB COMPANY-BMS-2017-022492

PATIENT
  Age: 54 Year
  Sex: Male
  Weight: 59.87 kg

DRUGS (1)
  1. OPDIVO [Suspect]
     Active Substance: NIVOLUMAB
     Indication: HEAD AND NECK CANCER
     Dosage: UNK
     Route: 042
     Dates: end: 20170310

REACTIONS (4)
  - Dry skin [Unknown]
  - Fatigue [Unknown]
  - Pyrexia [Unknown]
  - Pruritus [Unknown]

NARRATIVE: CASE EVENT DATE: 20170312
